FAERS Safety Report 5330057-5 (Version None)
Quarter: 2007Q2

REPORT INFORMATION
  Report Type: 
  Country: None (occurrence: None)
  Receive Date: 20070521
  Receipt Date: 20070517
  Transmission Date: 20071010
  Serious: Yes (Other)
  Sender: FDA-Public Use
  Company Number: GB-BRISTOL-MYERS SQUIBB COMPANY-12926283

PATIENT
  Age: 41 Year
  Sex: Female

DRUGS (7)
  1. ETOPOSIDE [Suspect]
     Indication: STEM CELL TRANSPLANT
  2. CARMUSTINE [Suspect]
  3. MABCAMPATH [Suspect]
     Indication: STEM CELL TRANSPLANT
  4. CYTARABINE [Suspect]
     Indication: STEM CELL TRANSPLANT
  5. MELPHALAN [Suspect]
     Indication: STEM CELL TRANSPLANT
  6. CYCLOSPORINE [Concomitant]
     Indication: PROPHYLAXIS AGAINST TRANSPLANT REJECTION
  7. METHOTREXATE [Concomitant]
     Indication: PROPHYLAXIS AGAINST TRANSPLANT REJECTION

REACTIONS (2)
  - ANAEMIA HAEMOLYTIC AUTOIMMUNE [None]
  - AUTOIMMUNE THROMBOCYTOPENIA [None]
